FAERS Safety Report 8440347-5 (Version None)
Quarter: 2012Q2

REPORT INFORMATION
  Report Type: 
  Country: None (occurrence: None)
  Receive Date: 20120615
  Receipt Date: 20120613
  Transmission Date: 20120825
  Serious: No
  Sender: FDA-Public Use
  Company Number: US-BAYER-2012-059393

PATIENT
  Sex: Male
  Weight: 101.59 kg

DRUGS (10)
  1. BETASERON [Suspect]
     Dosage: 0.3 MG, QOD
     Route: 058
  2. CELEBREX [Concomitant]
     Dosage: 200 MG
  3. LIPITOR [Concomitant]
     Dosage: 10 MG
  4. ASPIRIN [Concomitant]
     Dosage: 81 MG
  5. VENTOLIN [Concomitant]
  6. FLOVENT [Concomitant]
     Dosage: 110 MCG
  7. TOPAMAX [Concomitant]
     Dosage: 100 MG
  8. MEDROL [Concomitant]
     Dosage: 4 MG
  9. FENOFIBRATE [Concomitant]
     Dosage: 134 MG
  10. FLEXERIL [Concomitant]
     Dosage: 10 MG, UNK

REACTIONS (9)
  - NASAL CONGESTION [None]
  - COUGH [None]
  - DYSPNOEA [None]
  - CHILLS [None]
  - OROPHARYNGEAL PAIN [None]
  - ASTHENIA [None]
  - INFLUENZA LIKE ILLNESS [None]
  - NASOPHARYNGITIS [None]
  - PYREXIA [None]
